FAERS Safety Report 19019771 (Version 1)
Quarter: 2021Q1

REPORT INFORMATION
  Report Type: Spontaneous
  Country: US (occurrence: US)
  Receive Date: 20210317
  Receipt Date: 20210317
  Transmission Date: 20210420
  Serious: Yes (Death, Hospitalization, Disabling)
  Sender: FDA-Public Use
  Company Number: None

PATIENT
  Age: 56 Year
  Sex: Male
  Weight: 74.25 kg

DRUGS (6)
  1. OXALIPLATIN. [Suspect]
     Active Substance: OXALIPLATIN
     Indication: K-RAS GENE MUTATION
     Dosage: ?          OTHER FREQUENCY:DAYS 1 AND 15;?
     Route: 042
  2. OXALIPLATIN. [Suspect]
     Active Substance: OXALIPLATIN
     Indication: COLON CANCER STAGE IV
     Dosage: ?          OTHER FREQUENCY:DAYS 1 AND 15;?
     Route: 042
  3. LEUCOVORIN CALCIUM. [Concomitant]
     Active Substance: LEUCOVORIN CALCIUM
     Dates: start: 20200918, end: 20201014
  4. OXALIPLATIN. [Suspect]
     Active Substance: OXALIPLATIN
     Indication: COLON CANCER STAGE IV
     Dosage: ?          OTHER FREQUENCY:DAYS 1 AND 15;?
     Route: 042
  5. OXALIPLATIN. [Suspect]
     Active Substance: OXALIPLATIN
     Indication: K-RAS GENE MUTATION
     Dosage: ?          OTHER FREQUENCY:DAYS 1 AND 15;?
     Route: 042
  6. FLUOROURACIL. [Concomitant]
     Active Substance: FLUOROURACIL
     Dates: start: 20200918, end: 20201014

REACTIONS (6)
  - Pneumonia [None]
  - Dyspnoea [None]
  - Dyspnoea exertional [None]
  - Fatigue [None]
  - Lung consolidation [None]
  - Pneumonitis [None]

NARRATIVE: CASE EVENT DATE: 20201028
